FAERS Safety Report 16590748 (Version 1)
Quarter: 2019Q3

REPORT INFORMATION
  Report Type: Spontaneous
  Country: GB (occurrence: GB)
  Receive Date: 20190718
  Receipt Date: 20190718
  Transmission Date: 20191004
  Serious: Yes (Other)
  Sender: FDA-Public Use
  Company Number: GB-PFIZER INC-2019297874

PATIENT
  Age: 38 Year
  Sex: Female

DRUGS (7)
  1. DIAMORPHINE HYDROCHLORIDE [Concomitant]
     Active Substance: DIACETYLMORPHINE HYDROCHLORIDE
     Dosage: UNK
  2. ONDANSETRON HYDROCHLORIDE. [Concomitant]
     Active Substance: ONDANSETRON HYDROCHLORIDE
     Dosage: UNK
  3. HEMABATE [Suspect]
     Active Substance: CARBOPROST TROMETHAMINE
     Indication: UTERINE ATONY
     Dosage: 250 UG, UNK
     Route: 030
     Dates: start: 20190613, end: 20190613
  4. BUPIVACAINE. [Concomitant]
     Active Substance: BUPIVACAINE
     Dosage: UNK
  5. PHENYLEPHRINE [Concomitant]
     Active Substance: PHENYLEPHRINE HYDROCHLORIDE
     Dosage: UNK
  6. OXYTOCIN. [Concomitant]
     Active Substance: OXYTOCIN
     Dosage: UNK
  7. CO-AMOXICLAV [AMOXICILLIN;CLAVULANATE POTASSIUM] [Concomitant]
     Active Substance: AMOXICILLIN\CLAVULANATE POTASSIUM
     Dosage: UNK

REACTIONS (2)
  - Accelerated hypertension [Recovered/Resolved]
  - Administration site erythema [Not Recovered/Not Resolved]

NARRATIVE: CASE EVENT DATE: 20190613
